FAERS Safety Report 6399075-2 (Version None)
Quarter: 2009Q4

REPORT INFORMATION
  Report Type: 
  Country: None (occurrence: None)
  Receive Date: 20091008
  Receipt Date: 20090925
  Transmission Date: 20100525
  Serious: Yes (Other)
  Sender: FDA-Public Use
  Company Number: 8052660

PATIENT
  Age: 52 Year
  Sex: Male

DRUGS (9)
  1. KEPPRA [Suspect]
     Indication: CONVULSION
     Dosage: 1250 MG 2/D IV
     Route: 042
     Dates: start: 20090914, end: 20090922
  2. ASPIRIN [Concomitant]
  3. CALCIUM ACETATE [Concomitant]
  4. CLONIDINE [Concomitant]
  5. LANTUS [Concomitant]
  6. LOPERAMIDE [Concomitant]
  7. LORAZEPAM [Concomitant]
  8. METOPROLOL [Concomitant]
  9. OMEPRAZOLE [Concomitant]

REACTIONS (1)
  - LEUKOPENIA [None]
